FAERS Safety Report 7464866-3 (Version None)
Quarter: 2011Q2

REPORT INFORMATION
  Report Type: 
  Country: None (occurrence: None)
  Receive Date: 20110509
  Receipt Date: 20110403
  Transmission Date: 20111010
  Serious: Yes (Hospitalization, Other)
  Sender: FDA-Public Use
  Company Number: US-BAYER-200934525NA

PATIENT
  Age: 31 Year
  Sex: Female
  Weight: 132.43 kg

DRUGS (6)
  1. YAZ [Suspect]
     Indication: CONTRACEPTION
     Route: 048
  2. TYLENOL SINUS [Concomitant]
     Dosage: UNK UNK, UNK
     Route: 048
  3. PEPTOBISMOL [Concomitant]
     Dosage: UNK
     Route: 048
  4. ZYRTEC [Concomitant]
     Dosage: 10 MG, UNK
     Route: 048
  5. EXCEDRIN (MIGRAINE) [Concomitant]
     Dosage: UNK UNK, PRN
  6. DOMERIDONE [Concomitant]
     Dosage: UNK UNK, UNK

REACTIONS (2)
  - THROMBOSIS [None]
  - PULMONARY EMBOLISM [None]
